FAERS Safety Report 13176683 (Version 1)
Quarter: 2017Q1

REPORT INFORMATION
  Report Type: Spontaneous
  Country: NL (occurrence: NL)
  Receive Date: 20170201
  Receipt Date: 20170201
  Transmission Date: 20170428
  Serious: Yes (Death, Other)
  Sender: FDA-Public Use
  Company Number: NL-HERITAGE PHARMACEUTICALS-2017HTG00011

PATIENT

DRUGS (1)
  1. HYDRALAZINE HYDROCHLORIDE. [Suspect]
     Active Substance: HYDRALAZINE HYDROCHLORIDE
     Route: 065

REACTIONS (2)
  - Hepatic necrosis [Fatal]
  - Drug-induced liver injury [Fatal]
